FAERS Safety Report 24148496 (Version 2)
Quarter: 2024Q3

REPORT INFORMATION
  Report Type: Spontaneous
  Country: FR (occurrence: FR)
  Receive Date: 20240729
  Receipt Date: 20240731
  Transmission Date: 20241017
  Serious: Yes (Hospitalization, Other)
  Sender: MERCK
  Company Number: FR-MERCK-1203USA01524

PATIENT
  Age: 65 Year
  Sex: Female

DRUGS (13)
  1. EMEND [Interacting]
     Active Substance: APREPITANT
     Dosage: 80 MG, QD
     Route: 048
     Dates: start: 20120209, end: 20120211
  2. IFOSFAMIDE [Interacting]
     Active Substance: IFOSFAMIDE
     Dosage: 2.5 G, QD
     Route: 042
     Dates: start: 20120209, end: 20120211
  3. ONDANSETRON [Concomitant]
     Active Substance: ONDANSETRON
     Dosage: 8 MG, BID
     Route: 042
     Dates: start: 201107
  4. PRIMPERAN [Concomitant]
     Active Substance: METOCLOPRAMIDE HYDROCHLORIDE
     Route: 042
     Dates: start: 201107
  5. LEVOTHYROXINE [Concomitant]
     Active Substance: LEVOTHYROXINE\LEVOTHYROXINE SODIUM
  6. ATENOLOL [Concomitant]
     Active Substance: ATENOLOL
  7. NITROGLYCERIN [Concomitant]
     Active Substance: NITROGLYCERIN
     Dosage: 10 MG, UNK
  8. KARDEGIC [Concomitant]
     Active Substance: ASPIRIN DL-LYSINE
     Dosage: 160 MG, UNK
  9. PAROXETINE HYDROCHLORIDE [Concomitant]
     Active Substance: PAROXETINE HYDROCHLORIDE\PAROXETINE HYDROCHLORIDE ANHYDROUS
  10. INSULIN NOS [Concomitant]
     Active Substance: INSULIN NOS
  11. ACETAMINOPHEN [Concomitant]
     Active Substance: ACETAMINOPHEN
     Indication: Back pain
  12. OXYCODONE [Concomitant]
     Active Substance: OXYCODONE
     Indication: Back pain
  13. MESNA [Concomitant]
     Active Substance: MESNA
     Route: 042
     Dates: start: 20120209

REACTIONS (2)
  - Encephalopathy [Recovered/Resolved]
  - Drug interaction [Recovered/Resolved]

NARRATIVE: CASE EVENT DATE: 20120209
